FAERS Safety Report 8693373 (Version 6)
Quarter: 2012Q4

REPORT INFORMATION
  Report Type: 
  Country: JP (occurrence: JP)
  Receive Date: 20120730
  Receipt Date: 20121207
  Transmission Date: 20130627
  Serious: Yes (Death, Hospitalization)
  Sender: FDA-Public Use
  Company Number: JP-AMGEN-JPNCT2012047161

PATIENT
  Age: 74 Year
  Sex: Male
  Weight: 58 kg

DRUGS (31)
  1. PANITUMUMAB [Suspect]
     Indication: COLORECTAL CANCER
     Dosage: 340 mg, q2wk
     Route: 041
     Dates: start: 20120706, end: 20120706
  2. OXALIPLATIN [Concomitant]
     Indication: COLORECTAL CANCER
     Route: 041
     Dates: start: 20120706
  3. 5-FU [Concomitant]
     Indication: COLORECTAL CANCER
     Dosage: UNK UNK, q2wk
     Dates: start: 20120706, end: 20120708
  4. LEVOFOLINATE [Concomitant]
     Indication: COLORECTAL CANCER
     Dosage: 300 mg, q2wk
     Route: 041
     Dates: start: 20120706, end: 20120706
  5. TOPOTECIN [Concomitant]
     Indication: COLORECTAL CANCER
     Dosage: 240 mg, q2wk
     Route: 041
     Dates: start: 20120706, end: 20120706
  6. BASEN [Concomitant]
     Dosage: 0.3 mg, tid
     Route: 048
     Dates: start: 20120709, end: 20120719
  7. ALOXI [Concomitant]
     Indication: PROPHYLAXIS OF NAUSEA AND VOMITING
     Dosage: 0.75 mg, q2wk
     Route: 041
     Dates: start: 20120706, end: 20120706
  8. INNOLET 30R [Concomitant]
     Indication: DIABETES MELLITUS
     Dosage: 4 IU, tid
     Route: 042
  9. LEVEMIR [Concomitant]
     Indication: DIABETES MELLITUS
     Dosage: 6 IU, bid
     Route: 042
  10. HIRUDOID [Concomitant]
     Route: 062
     Dates: start: 20120706
  11. LOCOID [Concomitant]
     Route: 062
     Dates: start: 20120706, end: 20120719
  12. MINOMYCIN [Concomitant]
     Dosage: 100 mg, bid
     Route: 048
     Dates: start: 20120706, end: 20120721
  13. SERENACE [Concomitant]
     Dosage: 5 mg, qd
     Route: 042
     Dates: start: 20120707, end: 20120708
  14. PRIMPERAN [Concomitant]
     Dosage: 10 mg, qd
     Route: 042
     Dates: start: 20120707, end: 20120712
  15. DECADRON [Concomitant]
     Dosage: 20 mg, bid
     Route: 048
     Dates: start: 20120707, end: 20120707
  16. CARDENALIN [Concomitant]
     Dosage: 2 mg, bid
     Route: 048
  17. NORVASC [Concomitant]
     Dosage: 5 mg, bid
     Route: 048
  18. DIOVAN [Concomitant]
     Dosage: 40 mg, bid
     Route: 048
  19. ADONA [Concomitant]
     Dosage: 30 mg, tid
     Route: 048
  20. BIOFERMIN [Concomitant]
     Dosage: 3 g, tid
     Route: 048
  21. DAIKENTYUTO [Concomitant]
     Dosage: 7.5 g, tid
     Route: 048
     Dates: end: 20120711
  22. PANTOSIN [Concomitant]
     Dosage: 200 mg, tid
     Route: 048
  23. METHYCOBAL [Concomitant]
     Dosage: 0.5 mg, tid
     Route: 048
  24. FERROMIA [Concomitant]
     Dosage: 100 mg, qd
     Route: 048
  25. SENNOSIDE [Concomitant]
     Dosage: 36 mg, qd
     Route: 048
  26. NOVOLIN R [Concomitant]
     Dosage: UNK UNK, qd
     Route: 042
     Dates: start: 20120707
  27. SOLDACTONE [Concomitant]
     Dosage: 100 mg, qd
     Route: 042
     Dates: start: 20120709, end: 20120806
  28. LASIX [Concomitant]
     Dosage: 20 mg, bid
     Route: 042
     Dates: start: 20120709, end: 20120820
  29. AMARYL [Concomitant]
     Dosage: 1 mg, bid
     Route: 048
     Dates: end: 20120716
  30. MYSER [Concomitant]
     Route: 062
     Dates: end: 20120719
  31. PIPERACILLIN/TAZOBACTAM [Concomitant]
     Dosage: 13.5 mg, qd
     Dates: start: 20120618, end: 20120624

REACTIONS (6)
  - Interstitial lung disease [Fatal]
  - Pneumonia staphylococcal [Fatal]
  - Diarrhoea [Unknown]
  - Face oedema [Unknown]
  - Hiccups [Recovering/Resolving]
  - Hypoglycaemia [Recovered/Resolved]
